FAERS Safety Report 4385283-9 (Version None)
Quarter: 2004Q2

REPORT INFORMATION
  Report Type: 
  Country: None (occurrence: None)
  Receive Date: 20040607
  Receipt Date: 20430316
  Transmission Date: 20050107
  Serious: Yes (Other)
  Sender: FDA-Public Use
  Company Number: 361832

PATIENT
  Sex: 0

DRUGS (2)
  1. ISOTRETINOIN [Suspect]
     Indication: ACNE
     Dosage: 10 MG DAILY ORAL
     Route: 048
     Dates: start: 20030815, end: 20031012
  2. ALDACTONE [Suspect]
     Indication: ACNE
     Dosage: 5 MG DAILY ORAL
     Route: 048
     Dates: start: 20030815

REACTIONS (2)
  - ABORTION [None]
  - ABORTION INDUCED [None]
